FAERS Safety Report 8619779 (Version 2)
Quarter: 2013Q1

REPORT INFORMATION
  Report Type: Spontaneous
  Country: GB (occurrence: None)
  Receive Date: 20120605
  Receipt Date: 20130122
  Transmission Date: 20140127
  Serious: Yes (Other)
  Sender: FDA-Public Use
  Company Number: GER/UKI/12/0024444

PATIENT
  Age: 46 Year
  Sex: Male

DRUGS (3)
  1. LEVETIRACETAM [Suspect]
     Indication: EPILEPSY
     Dosage: ORAL
     Route: 048
     Dates: start: 20090401
  2. SALBUTAMOL (SALBUTAMOL) [Concomitant]
  3. SERETIDE (SERETIDE) [Concomitant]

REACTIONS (3)
  - Cough [None]
  - Dysgeusia [None]
  - Wheezing [None]
